FAERS Safety Report 20793944 (Version 1)
Quarter: 2022Q2

REPORT INFORMATION
  Report Type: Spontaneous
  Country: US (occurrence: None)
  Receive Date: 20220506
  Receipt Date: 20220506
  Transmission Date: 20220721
  Serious: Yes (Death, Other)
  Sender: FDA-Public Use
  Company Number: US-ROCHE-3087167

PATIENT
  Age: 48 Year
  Sex: Female

DRUGS (21)
  1. AVASTIN [Suspect]
     Active Substance: BEVACIZUMAB
     Indication: Rectal cancer
     Route: 042
  2. LONSURF [Suspect]
     Active Substance: TIPIRACIL HYDROCHLORIDE\TRIFLURIDINE
     Indication: Rectal cancer
     Route: 048
     Dates: start: 20190607
  3. ASPIRIN [Concomitant]
     Active Substance: ASPIRIN
  4. HYDROXYZINE HYDROCHLORIDE [Concomitant]
     Active Substance: HYDROXYZINE HYDROCHLORIDE
  5. VITAMIN B12 [Concomitant]
     Active Substance: CYANOCOBALAMIN
  6. ERGOCALCIFEROL [Concomitant]
     Active Substance: ERGOCALCIFEROL
  7. AMLODIPINE [Concomitant]
     Active Substance: AMLODIPINE BESYLATE
  8. COREG [Concomitant]
     Active Substance: CARVEDILOL
  9. DIAZEPAM [Concomitant]
     Active Substance: DIAZEPAM
  10. HYDRALAZINE [Concomitant]
     Active Substance: HYDRALAZINE HYDROCHLORIDE
  11. HYOSCYAMINE [Concomitant]
     Active Substance: HYOSCYAMINE
  12. HYOSCYAMINE SULFATE [Concomitant]
     Active Substance: HYOSCYAMINE SULFATE
  13. LOSARTAN [Concomitant]
     Active Substance: LOSARTAN
  14. MINOXIDIL [Concomitant]
     Active Substance: MINOXIDIL
  15. NEULASTA [Concomitant]
     Active Substance: PEGFILGRASTIM
  16. ONDANSETRON [Concomitant]
     Active Substance: ONDANSETRON
  17. RENVELA [Concomitant]
     Active Substance: SEVELAMER CARBONATE
  18. SENSIPAR [Concomitant]
     Active Substance: CINACALCET HYDROCHLORIDE
  19. STIVARGA [Concomitant]
     Active Substance: REGORAFENIB
  20. VITAMIN B COMPLEX [Concomitant]
     Active Substance: CYANOCOBALAMIN\DEXPANTHENOL\NIACINAMIDE\PYRIDOXINE HYDROCHLORIDE\RIBOFLAVIN 5^-PHOSPHATE SODIUM\THIA
  21. CHOLECALCIFEROL [Concomitant]
     Active Substance: CHOLECALCIFEROL

REACTIONS (13)
  - Death [Fatal]
  - End stage renal disease [Unknown]
  - Jaundice [Unknown]
  - Paraesthesia [Unknown]
  - Hyperkalaemia [Recovered/Resolved]
  - Carcinoembryonic antigen increased [Unknown]
  - Hypertension [Not Recovered/Not Resolved]
  - Fatigue [Unknown]
  - Stomatitis [Unknown]
  - Abdominal discomfort [Unknown]
  - Product dose omission issue [Unknown]
  - Neuropathy peripheral [Unknown]
  - Inappropriate schedule of product administration [Unknown]

NARRATIVE: CASE EVENT DATE: 20200920
